FAERS Safety Report 20353272 (Version 1)
Quarter: 2022Q1

REPORT INFORMATION
  Report Type: Spontaneous
  Country: US (occurrence: US)
  Receive Date: 20220119
  Receipt Date: 20220119
  Transmission Date: 20220423
  Serious: Yes (Other)
  Sender: FDA-Public Use
  Company Number: US-GILEAD-2022-0565722

PATIENT
  Age: 65 Year
  Sex: Female
  Weight: 55.8 kg

DRUGS (1)
  1. TECARTUS [Suspect]
     Active Substance: BREXUCABTAGENE AUTOLEUCEL
     Indication: Mantle cell lymphoma
     Dosage: UNK
     Route: 065
     Dates: start: 20211118

REACTIONS (12)
  - Cytokine release syndrome [Unknown]
  - Neurotoxicity [Unknown]
  - Fatigue [Unknown]
  - Tachycardia [Unknown]
  - Hypotension [Unknown]
  - Pyrexia [Unknown]
  - Hypotension [Unknown]
  - Alanine aminotransferase increased [Unknown]
  - Hypoxia [Unknown]
  - Hyponatraemia [Unknown]
  - Diarrhoea [Unknown]
  - Pleural effusion [Unknown]

NARRATIVE: CASE EVENT DATE: 20211119
